FAERS Safety Report 9284034 (Version 3)
Quarter: 2014Q1

REPORT INFORMATION
  Report Type: Spontaneous
  Country: DK (occurrence: DK)
  Receive Date: 20130510
  Receipt Date: 20140102
  Transmission Date: 20141002
  Serious: Yes (Life-Threatening, Hospitalization)
  Sender: FDA-Public Use
  Company Number: DK-BRISTOL-MYERS SQUIBB COMPANY-18849604

PATIENT
  Age: 59 Year
  Sex: Male

DRUGS (11)
  1. SPRYCEL (PH+ALL) TABS [Suspect]
     Indication: ACUTE LYMPHOCYTIC LEUKAEMIA
     Dosage: STYRKE: 140 MG?FILM-COATED TABLET
     Route: 048
     Dates: start: 20130312, end: 20130404
  2. NOVOMIX [Concomitant]
     Dosage: NOVOMIX 30 FLEXPEN
  3. METFORMIN HCL [Concomitant]
  4. VANCOMYCIN [Concomitant]
  5. MERONEM [Concomitant]
  6. AMLODIPINE MESILATE [Concomitant]
  7. SIMVASTATIN [Concomitant]
  8. LOSARTAN [Concomitant]
  9. FURIX [Concomitant]
  10. NOXAFIL [Concomitant]
  11. ACICLOVIR [Concomitant]

REACTIONS (1)
  - Stevens-Johnson syndrome [Recovering/Resolving]
